FAERS Safety Report 8530949-X (Version None)
Quarter: 2012Q3

REPORT INFORMATION
  Report Type: 
  Country: None (occurrence: None)
  Receive Date: 20120723
  Receipt Date: 20120718
  Transmission Date: 20120928
  Serious: Yes (Death, Hospitalization, Other)
  Sender: FDA-Public Use
  Company Number: GB-ROCHE-1090159

PATIENT
  Sex: Male

DRUGS (4)
  1. LUCENTIS [Suspect]
     Indication: PRODUCT USED FOR UNKNOWN INDICATION
     Route: 050
  2. KEPPRA [Concomitant]
     Route: 065
  3. LUCENTIS [Suspect]
     Route: 050
     Dates: start: 20090101, end: 20090101
  4. WARFARIN SODIUM [Concomitant]
     Route: 065

REACTIONS (4)
  - CARDIAC FAILURE [None]
  - MALIGNANT MELANOMA [None]
  - ENCEPHALOPATHY [None]
  - COMPLEX PARTIAL SEIZURES [None]
